FAERS Safety Report 8334513-7 (Version None)
Quarter: 2012Q2

REPORT INFORMATION
  Report Type: 
  Country: None (occurrence: None)
  Receive Date: 20120503
  Receipt Date: 20120501
  Transmission Date: 20120825
  Serious: Yes (Other)
  Sender: FDA-Public Use
  Company Number: US-GILEAD-E2B_00001352

PATIENT
  Sex: Female

DRUGS (8)
  1. TADALAFIL [Suspect]
     Indication: PULMONARY ARTERIAL HYPERTENSION
     Dosage: 40 MG, UNK
     Route: 048
     Dates: start: 20110420
  2. FUROSEMIDE [Concomitant]
     Dosage: 120MG TWICE PER DAY
     Route: 048
  3. GABAPENTIN [Concomitant]
     Indication: NEUROPATHY PERIPHERAL
     Dosage: 200MG TWICE PER DAY
     Route: 048
     Dates: start: 20110414
  4. FUROSEMIDE [Concomitant]
     Indication: RIGHT VENTRICULAR FAILURE
     Route: 048
  5. AMBRISENTAN [Suspect]
     Indication: PULMONARY ARTERIAL HYPERTENSION
     Dosage: 5 MG, UNK
     Route: 048
     Dates: start: 20110420
  6. GABAPENTIN [Concomitant]
  7. POTASSIUM CHLORIDE [Concomitant]
     Indication: PROPHYLAXIS
     Dosage: 20MEQ TWICE PER DAY
     Route: 048
     Dates: start: 20110507
  8. POTASSIUM CHLORIDE [Concomitant]

REACTIONS (6)
  - HEPATITIS E [None]
  - LIVER INJURY [None]
  - FALSE POSITIVE INVESTIGATION RESULT [None]
  - HEPATITIS C [None]
  - HEPATITIS A ANTIBODY POSITIVE [None]
  - HEPATITIS B CORE ANTIBODY POSITIVE [None]
